FAERS Safety Report 9613910 (Version 2)
Quarter: 2013Q4

REPORT INFORMATION
  Report Type: Other
  Country: IT (occurrence: IT)
  Receive Date: 20131010
  Receipt Date: 20131010
  Transmission Date: 20140711
  Serious: Yes (Hospitalization)
  Sender: FDA-Public Use
  Company Number: IT-TAKEDA-TIF2013A00032

PATIENT
  Sex: 0

DRUGS (4)
  1. LANSOPRAZOLE [Suspect]
     Indication: GASTRITIS PROPHYLAXIS
     Dosage: 30 MG, QD
     Route: 048
     Dates: start: 20121010, end: 20121119
  2. DILZENE [Concomitant]
  3. LASIX [Concomitant]
  4. CLEXANE [Concomitant]

REACTIONS (1)
  - Diarrhoea [Recovered/Resolved]
